FAERS Safety Report 5520650-9 (Version None)
Quarter: 2007Q4

REPORT INFORMATION
  Report Type: 
  Country: None (occurrence: None)
  Receive Date: 20071119
  Receipt Date: 20071107
  Transmission Date: 20080405
  Serious: Yes (Hospitalization, Disabling)
  Sender: FDA-Public Use
  Company Number: FI-WYE-H01098207

PATIENT
  Sex: Male

DRUGS (7)
  1. CORDARONE [Suspect]
     Indication: ATRIAL FIBRILLATION
     Route: 048
     Dates: start: 20050527, end: 20060217
  2. CORDARONE [Suspect]
     Route: 048
     Dates: start: 20060218, end: 20070427
  3. PANACO [Concomitant]
     Indication: GOUT
     Dosage: 500/30 MG-3 TIMES DAILY WHEN NEEDED
     Route: 048
  4. NORVASC [Concomitant]
     Indication: HYPERTENSION
     Route: 048
  5. REMERON [Concomitant]
     Indication: DEPRESSION
     Route: 048
  6. MAREVAN [Concomitant]
     Indication: PROPHYLAXIS
     Route: 048
  7. SPESICOR [Concomitant]
     Indication: ATRIAL FIBRILLATION
     Route: 048

REACTIONS (2)
  - AUTOIMMUNE THYROIDITIS [None]
  - HYPERTHYROIDISM [None]
